FAERS Safety Report 8911892 (Version 1)
Quarter: 2012Q4

REPORT INFORMATION
  Report Type: Spontaneous
  Country: US (occurrence: None)
  Receive Date: 20121113
  Receipt Date: 20121113
  Transmission Date: 20130627
  Serious: Yes (Other)
  Sender: FDA-Public Use
  Company Number: 2012P1063560

PATIENT
  Age: 64 Year
  Sex: Female
  Weight: 47.63 kg

DRUGS (4)
  1. FENTANYL PATCH [Suspect]
     Indication: FRACTURE OF SPINE
     Route: 062
  2. FORTEO [Suspect]
  3. MORPHINE [Concomitant]
  4. CYCLOBENZAPRINE [Concomitant]

REACTIONS (9)
  - Insomnia [None]
  - Hyperhidrosis [None]
  - Rib fracture [None]
  - Tooth extraction [None]
  - Dysphonia [None]
  - Dry throat [None]
  - Sinusitis [None]
  - Increased upper airway secretion [None]
  - Oropharyngeal pain [None]
